FAERS Safety Report 6696870-7 (Version None)
Quarter: 2010Q2

REPORT INFORMATION
  Report Type: 
  Country: None (occurrence: None)
  Receive Date: 20100420
  Receipt Date: 20090318
  Transmission Date: 20101027
  Serious: Yes (Hospitalization)
  Sender: FDA-Public Use
  Company Number: SPV1-2009-00476

PATIENT
  Age: 59 Year
  Sex: Male

DRUGS (4)
  1. MESALAMINE [Suspect]
     Indication: COLITIS ULCERATIVE
     Dosage: 2.4 G, 1X/DAY:QD, ORAL
     Route: 048
     Dates: start: 20080416
  2. BASALAZINE DISODIUM (BASALAZIDE SODIUM) [Concomitant]
  3. PAROXETINE HCL [Concomitant]
  4. TRAZODONE HCL [Concomitant]

REACTIONS (1)
  - HAEMATOCHEZIA [None]
